FAERS Safety Report 18570304 (Version 2)
Quarter: 2021Q1

REPORT INFORMATION
  Report Type: Spontaneous
  Country: US (occurrence: US)
  Receive Date: 20201202
  Receipt Date: 20210108
  Transmission Date: 20210419
  Serious: Yes (Death, Other)
  Sender: FDA-Public Use
  Company Number: US-009507513-2011USA013699

PATIENT
  Age: 36 Year
  Sex: Male

DRUGS (4)
  1. DEXAMETHASONE. [Suspect]
     Active Substance: DEXAMETHASONE
     Indication: MENINGITIS COCCIDIOIDES
     Dosage: 3 MILLIGRAM, Q6H; WITH A 5?DAY TAPER TO 1 MG IV EVERY 12 H
     Route: 042
  2. NOXAFIL [Suspect]
     Active Substance: POSACONAZOLE
     Indication: MENINGITIS COCCIDIOIDES
     Dosage: 300 MILLIGRAM, DAILY
     Route: 042
  3. DECADRON [Suspect]
     Active Substance: DEXAMETHASONE
     Indication: COCCIDIOIDOMYCOSIS
     Dosage: 4 MILLIGRAM, Q6H; 27?DAY TAPER FROM 4 MG EVERY 6 H TO 1 MG DAILY
     Route: 048
  4. NOXAFIL [Suspect]
     Active Substance: POSACONAZOLE
     Dosage: UNK
     Route: 048

REACTIONS (6)
  - Product use issue [Unknown]
  - Product use in unapproved indication [Unknown]
  - Large intestine perforation [Fatal]
  - Tubulointerstitial nephritis [Unknown]
  - Incorrect dose administered [Unknown]
  - Gastrointestinal wall thinning [Fatal]
